FAERS Safety Report 17594799 (Version 1)
Quarter: 2020Q1

REPORT INFORMATION
  Report Type: Spontaneous
  Country: US (occurrence: US)
  Receive Date: 20200328
  Receipt Date: 20200328
  Transmission Date: 20200409
  Serious: No
  Sender: FDA-Public Use
  Company Number: US-GLAXOSMITHKLINE-US2020050223

PATIENT
  Age: 92 Year
  Sex: Female

DRUGS (1)
  1. INCRUSE ELLIPTA [Suspect]
     Active Substance: UMECLIDINIUM BROMIDE
     Indication: PRODUCT USED FOR UNKNOWN INDICATION
     Dosage: 1 PUFF(S), 1D
     Route: 065

REACTIONS (5)
  - Product dose omission [Unknown]
  - Dyspnoea [Unknown]
  - Dizziness [Unknown]
  - Wrong technique in device usage process [Unknown]
  - Memory impairment [Unknown]

NARRATIVE: CASE EVENT DATE: 20200318
